FAERS Safety Report 6176022-X (Version None)
Quarter: 2009Q2

REPORT INFORMATION
  Report Type: 
  Country: None (occurrence: None)
  Receive Date: 20090501
  Receipt Date: 20090422
  Transmission Date: 20091009
  Serious: Yes (Other)
  Sender: FDA-Public Use
  Company Number: US-ROCHE-629130

PATIENT
  Sex: Female
  Weight: 59.9 kg

DRUGS (7)
  1. CAPECITABINE [Suspect]
     Indication: BREAST CANCER
     Dosage: ROUTE: MOUTH
     Route: 048
     Dates: start: 20070401, end: 20090415
  2. GEMZAR [Suspect]
     Indication: TUMOUR MARKER INCREASED
     Dosage: SECOND DOSAGE TAKEN ON 07 APRIL 2009
     Route: 065
  3. AREDIA [Concomitant]
  4. AROMASIN [Concomitant]
  5. PROZAC [Concomitant]
  6. FASLODEX [Concomitant]
  7. XANAX [Concomitant]

REACTIONS (7)
  - ABASIA [None]
  - ERYTHEMA [None]
  - MUSCULAR WEAKNESS [None]
  - OEDEMA PERIPHERAL [None]
  - PAIN IN EXTREMITY [None]
  - TENDERNESS [None]
  - TUMOUR MARKER INCREASED [None]
